FAERS Safety Report 9153349 (Version 1)
Quarter: 2013Q1

REPORT INFORMATION
  Report Type: Spontaneous
  Country: DK (occurrence: None)
  Receive Date: 20130204
  Receipt Date: 20130204
  Transmission Date: 20140127
  Serious: Yes (Other)
  Sender: FDA-Public Use
  Company Number: 2013MA000808

PATIENT
  Age: 58 Year
  Sex: Female

DRUGS (2)
  1. DIAZEPAM TABLETS USP, 10 MG (PUREPAC) (DIAZEPAM) [Suspect]
     Indication: PRODUCT USED FOR UNKNOWN INDICATION
     Route: 054
  2. CITODON [Concomitant]

REACTIONS (10)
  - Pain [None]
  - Muscle spasms [None]
  - Mobility decreased [None]
  - Road traffic accident [None]
  - Anxiety [None]
  - Intestinal haemorrhage [None]
  - Faeces discoloured [None]
  - Weight decreased [None]
  - Alopecia [None]
  - Sciatica [None]
